FAERS Safety Report 9346325 (Version 3)
Quarter: 2013Q2

REPORT INFORMATION
  Report Type: Spontaneous
  Country: US (occurrence: US)
  Receive Date: 20130613
  Receipt Date: 20130621
  Transmission Date: 20140414
  Serious: No
  Sender: FDA-Public Use
  Company Number: US-009507513-1305USA010128

PATIENT
  Age: 74 Year
  Sex: Female

DRUGS (8)
  1. CLARITIN-D-24 [Suspect]
     Indication: HYPERSENSITIVITY
     Dosage: 10 MG, ONCE
     Route: 048
     Dates: start: 20130427, end: 20130427
  2. CLARITIN-D-24 [Suspect]
     Indication: SINUS CONGESTION
  3. CLARITIN-D-24 [Suspect]
     Indication: MEDICAL OBSERVATION
  4. LISINOPRIL [Concomitant]
     Indication: BLOOD PRESSURE
     Dosage: UNK, UNKNOWN
  5. CLONIDINE [Concomitant]
     Indication: BLOOD PRESSURE
  6. AMLODIPINE [Concomitant]
     Indication: BLOOD PRESSURE
  7. LEVOTHYROXINE SODIUM [Concomitant]
     Indication: THYROID DISORDER
  8. EQUATE ARTHRITIS PAIN [Concomitant]
     Indication: ARTHRITIS

REACTIONS (1)
  - Poor quality sleep [Recovered/Resolved]
